FAERS Safety Report 8957374 (Version 5)
Quarter: 2013Q4

REPORT INFORMATION
  Report Type: Report from Study
  Country: CA (occurrence: CA)
  Receive Date: 20121210
  Receipt Date: 20131128
  Transmission Date: 20140711
  Serious: Yes (Other)
  Sender: FDA-Public Use
  Company Number: CA-ROCHE-1163385

PATIENT
  Age: 53 Year
  Sex: Female
  Weight: 84 kg

DRUGS (21)
  1. ACTEMRA [Suspect]
     Indication: RHEUMATOID ARTHRITIS
     Route: 042
     Dates: start: 20110218
  2. ACTEMRA [Suspect]
     Route: 042
     Dates: start: 20110324
  3. ACTEMRA [Suspect]
     Route: 042
     Dates: start: 20111103
  4. ACTEMRA [Suspect]
     Route: 042
     Dates: start: 20121101
  5. NAPROSYN [Suspect]
     Indication: RHEUMATOID ARTHRITIS
     Route: 065
  6. PREMARIN [Concomitant]
     Dosage: 1 TABLET DAILY
     Route: 065
  7. FOLIC ACID [Concomitant]
  8. VENTOLIN [Concomitant]
     Dosage: 2 PUFFS 4 TIMES DAILY.
     Route: 050
  9. FLOVENT [Concomitant]
     Dosage: AS REQUIRED
     Route: 065
  10. SYMBICORT [Concomitant]
     Dosage: DOSE : 200/6, 1-2 INHALATIONS TWICE DAILY
     Route: 050
  11. GRAVOL [Concomitant]
  12. METHOTREXATE [Concomitant]
     Indication: RHEUMATOID ARTHRITIS
     Route: 048
     Dates: start: 20090317
  13. METHOTREXATE [Concomitant]
     Dosage: 8 TABLET ONCE WEEKLY
     Route: 065
  14. AMITRIPTYLINE [Concomitant]
  15. RABEPRAZOLE [Concomitant]
     Dosage: 1 TABLET DAILY
     Route: 065
  16. JANUVIA [Concomitant]
     Route: 065
  17. DEMEROL [Concomitant]
     Dosage: 1 TABLET FOUR TIMES (EVERY 6 HOURS).
     Route: 065
  18. ELAVIL (CANADA) [Concomitant]
     Dosage: 2 TABLETS AT HS (BEDTIME)
     Route: 065
  19. METFORMIN [Concomitant]
     Dosage: 1-2 TABLETS TWICE DAILY.
     Route: 065
  20. PRAVASTATIN [Concomitant]
     Dosage: 1 TABLET AT HS (BEDTIME)
     Route: 065
  21. EZETROL [Concomitant]
     Dosage: 1 TABLET DAILY
     Route: 065

REACTIONS (9)
  - Syncope [Recovering/Resolving]
  - Tachycardia [Recovering/Resolving]
  - Pneumonia [Recovered/Resolved]
  - Herpes zoster [Recovered/Resolved]
  - Laryngitis [Recovered/Resolved]
  - Pain [Recovering/Resolving]
  - Local swelling [Recovered/Resolved]
  - Pain in extremity [Recovered/Resolved]
  - Weight increased [Recovering/Resolving]
